FAERS Safety Report 6644242-3 (Version None)
Quarter: 2010Q1

REPORT INFORMATION
  Report Type: 
  Country: None (occurrence: None)
  Receive Date: 20100319
  Receipt Date: 20100319
  Transmission Date: 20100710
  Serious: Yes (Hospitalization)
  Sender: FDA-Public Use
  Company Number: None

PATIENT
  Age: 33 Year
  Sex: Female
  Weight: 62 kg

DRUGS (6)
  1. AMITRIPTYLINE HCL [Suspect]
     Indication: MIGRAINE
     Dosage: 20MG QHS PO
     Route: 048
  2. ZOFRAN ODT [Concomitant]
  3. MONSTER ENERGY DRINKS [Concomitant]
  4. ALCOHOL [Concomitant]
  5. ^RED BULL^ [Concomitant]
  6. THC [Concomitant]

REACTIONS (4)
  - DELIRIUM [None]
  - HALLUCINATION [None]
  - PSYCHOTIC DISORDER [None]
  - URINARY TRACT INFECTION [None]
